FAERS Safety Report 7269918-9 (Version None)
Quarter: 2011Q1

REPORT INFORMATION
  Report Type: 
  Country: None (occurrence: None)
  Receive Date: 20110202
  Receipt Date: 20110125
  Transmission Date: 20110831
  Serious: Yes (Death, Hospitalization)
  Sender: FDA-Public Use
  Company Number: GB-PFIZER INC-GB-WYE-G05871810

PATIENT
  Age: 62 Year
  Sex: Female

DRUGS (3)
  1. CYTARABINE [Suspect]
     Indication: ACUTE MYELOID LEUKAEMIA
     Dosage: 100 MG/M2,EVERY 12 HOURS BY IV PUSH ON DAYS 1-10
     Route: 042
     Dates: start: 20100312, end: 20100322
  2. GEMTUZUMAB OZOGAMICIN [Suspect]
     Indication: ACUTE MYELOID LEUKAEMIA
     Dosage: 3 MG/M2, UNK
     Route: 042
     Dates: start: 20100312, end: 20100312
  3. DAUNORUBICIN [Suspect]
     Indication: ACUTE MYELOID LEUKAEMIA
     Dosage: 50 MG/M2,BY INFUSION ON DAYS 1, 3 AND 5
     Route: 041
     Dates: start: 20100312, end: 20100322

REACTIONS (4)
  - MULTI-ORGAN FAILURE [None]
  - NEUTROPENIC SEPSIS [None]
  - BRONCHOPNEUMONIA [None]
  - ACUTE RESPIRATORY DISTRESS SYNDROME [None]
